FAERS Safety Report 5524692-9 (Version None)
Quarter: 2007Q4

REPORT INFORMATION
  Report Type: 
  Country: None (occurrence: None)
  Receive Date: 20071123
  Receipt Date: 20071114
  Transmission Date: 20080405
  Serious: Yes (Other)
  Sender: FDA-Public Use
  Company Number: BR-PFIZER INC-2007096817

PATIENT
  Sex: Female
  Weight: 51 kg

DRUGS (2)
  1. ZOLTEC [Suspect]
     Indication: HAIR DISORDER
     Route: 048
     Dates: start: 20071019, end: 20071019
  2. CONTRACEPTIVE, UNSPECIFIED [Concomitant]
     Route: 048

REACTIONS (2)
  - HEPATITIS B [None]
  - MALAISE [None]
